FAERS Safety Report 25248862 (Version 1)
Quarter: 2025Q2

REPORT INFORMATION
  Report Type: Spontaneous
  Country: CN (occurrence: CN)
  Receive Date: 20250429
  Receipt Date: 20250429
  Transmission Date: 20250716
  Serious: Yes (Hospitalization, Other)
  Sender: SANOFI AVENTIS
  Company Number: CN-SA-2025SA119586

PATIENT
  Age: 57 Year
  Sex: Female
  Weight: 49 kg

DRUGS (3)
  1. ELOXATIN [Suspect]
     Active Substance: OXALIPLATIN
     Indication: Neoplasm malignant
     Dosage: 200 MG, Q3W
     Route: 041
     Dates: start: 20240722, end: 20250217
  2. CAPECITABINE [Suspect]
     Active Substance: CAPECITABINE
     Indication: Neoplasm malignant
     Dosage: 3 DF, BID
     Route: 048
     Dates: start: 20240722, end: 20250217
  3. BEVACIZUMAB [Suspect]
     Active Substance: BEVACIZUMAB
     Indication: Neoplasm malignant
     Dosage: 375 MG, Q3W
     Route: 041
     Dates: start: 20240722, end: 20250217

REACTIONS (10)
  - Cholestatic liver injury [Unknown]
  - Cholangitis [Unknown]
  - Cholecystitis [Unknown]
  - Metastases to liver [Unknown]
  - Drug-induced liver injury [Unknown]
  - Jaundice [Unknown]
  - Ascites [Unknown]
  - Pancreatitis acute [Unknown]
  - Infection [Unknown]
  - Pyrexia [Unknown]

NARRATIVE: CASE EVENT DATE: 20250221
